FAERS Safety Report 18068097 (Version 1)
Quarter: 2020Q3

REPORT INFORMATION
  Report Type: Spontaneous
  Country: US (occurrence: US)
  Receive Date: 20200724
  Receipt Date: 20200724
  Transmission Date: 20201103
  Serious: Yes (Hospitalization)
  Sender: FDA-Public Use
  Company Number: US-ASTRAZENECA-2020SE89984

PATIENT
  Age: 33389 Day
  Sex: Male
  Weight: 94.8 kg

DRUGS (17)
  1. AMIODARONE [Concomitant]
     Active Substance: AMIODARONE
     Indication: ARRHYTHMIA
     Dosage: 200.0MG UNKNOWN
     Route: 048
  2. TAMSULOSIN [Concomitant]
     Active Substance: TAMSULOSIN
     Indication: MICTURITION DISORDER
     Route: 048
  3. OCUVITE [Concomitant]
     Active Substance: VITAMINS
     Dosage: DOSE AND FREQUENCY UNKNOWN
     Route: 065
  4. VITAMIN B12 [Concomitant]
     Active Substance: CYANOCOBALAMIN
     Dosage: DOSE AND FREQUENCY UNKNOWN
     Route: 065
  5. FISH OIL [Concomitant]
     Active Substance: FISH OIL
     Dosage: DOSE AND FREQUENCY UNKNOWN
     Route: 065
  6. ASPIRIN. [Concomitant]
     Active Substance: ASPIRIN
     Dosage: 81.0MG UNKNOWN
     Route: 048
  7. LUMIGAN [Concomitant]
     Active Substance: BIMATOPROST
     Indication: GLAUCOMA
     Dosage: DROP IN THE EVENING RIGHT EYE, NOT LEFT
     Route: 047
  8. TORSEMIDE. [Concomitant]
     Active Substance: TORSEMIDE
     Indication: OEDEMA
     Dosage: DOSE AND FREQUENCY UNKNOWN
     Route: 048
  9. ATORVASTATIN [Concomitant]
     Active Substance: ATORVASTATIN
     Indication: BLOOD CHOLESTEROL INCREASED
     Dosage: 80.0MG UNKNOWN
     Route: 048
  10. PROBENECID. [Concomitant]
     Active Substance: PROBENECID
     Indication: GOUT
     Dosage: DOSE AND FREQUENCY UNKNOWN
     Route: 048
  11. VITAMIN D3 [Concomitant]
     Active Substance: CHOLECALCIFEROL
     Dosage: DOSE AND FREQUENCY UNKNOWN
     Route: 065
  12. BYDUREON BCISE [Suspect]
     Active Substance: EXENATIDE
     Indication: TYPE 2 DIABETES MELLITUS
     Route: 058
  13. BUSPIRONE [Concomitant]
     Active Substance: BUSPIRONE HYDROCHLORIDE
     Indication: ANXIETY
     Route: 048
  14. BYDUREON [Suspect]
     Active Substance: EXENATIDE
     Indication: TYPE 2 DIABETES MELLITUS
     Route: 058
  15. POTASSIUM CHLORIDE. [Concomitant]
     Active Substance: POTASSIUM CHLORIDE
     Route: 048
  16. ZOLOFT [Concomitant]
     Active Substance: SERTRALINE HYDROCHLORIDE
     Indication: DEPRESSION
     Dosage: 50.0MG UNKNOWN
     Route: 048
  17. INSULIN SHOT [Concomitant]
     Dosage: DOSE AND FREQUENCY UNKNOWN
     Route: 065

REACTIONS (3)
  - Cerebrovascular accident [Recovered/Resolved with Sequelae]
  - Product dose omission issue [Unknown]
  - Product dispensing error [Unknown]

NARRATIVE: CASE EVENT DATE: 20190713
